FAERS Safety Report 24825548 (Version 2)
Quarter: 2025Q1

REPORT INFORMATION
  Report Type: Spontaneous
  Country: US (occurrence: US)
  Receive Date: 20250109
  Receipt Date: 20250116
  Transmission Date: 20250409
  Serious: No
  Sender: MYLAN
  Company Number: US-MYLANLABS-2025M1000902

PATIENT
  Age: 75 Year
  Sex: Female

DRUGS (2)
  1. FENTANYL TRANSDERMAL SYSTEM [Suspect]
     Active Substance: FENTANYL
     Indication: Product used for unknown indication
     Dosage: 25 MICROGRAM, QH
     Route: 062
  2. FENTANYL [Concomitant]
     Active Substance: FENTANYL
     Route: 065

REACTIONS (2)
  - Wrong technique in product usage process [Unknown]
  - Product adhesion issue [Unknown]

NARRATIVE: CASE EVENT DATE: 20241201
